FAERS Safety Report 4483398-8 (Version None)
Quarter: 2004Q4

REPORT INFORMATION
  Report Type: 
  Country: None (occurrence: None)
  Receive Date: 20041020
  Receipt Date: 20041005
  Transmission Date: 20050328
  Serious: Yes (Hospitalization)
  Sender: FDA-Public Use
  Company Number: CAP04000232

PATIENT
  Age: 44 Year
  Sex: Female

DRUGS (20)
  1. ACTONEL [Suspect]
     Indication: OSTEOPOROSIS
     Dosage: 35 MG ONCE WEEKLY, ORAL
     Route: 048
     Dates: start: 20010101, end: 20040101
  2. TYLENOL [Concomitant]
  3. SAVLON (CHLORHEXIDINE HYDROCHLORIDE, CETRIMONIUM BROMIDE) [Concomitant]
  4. BETADINE   PURDUE  (POVIDONE-IODINE) [Concomitant]
  5. SUNSCREEN (BUTYL METHOXYDIBENZOYLMETHANE, OCTINOXATE) [Concomitant]
  6. CALADRYL (GLYCEROL, CALAMIN) [Concomitant]
  7. NEOSPORIN (BACITRACIN ZINC, NEOMYCIN SULFATE, POLYMYXIN B SULFATE) [Concomitant]
  8. DULCOLAX [Concomitant]
  9. FLEET ENEMA (SODIUM PHOSPHATE, SODIUM PHOSPHATE DIBASIC) [Concomitant]
  10. DILANTIN [Concomitant]
  11. DOCUSATE SODIUM (DOCUSATE SODIUM) [Concomitant]
  12. CENTRUM (MINERALS NOS, VITAMINS NOS) [Concomitant]
  13. SENNOSIDE A+B [Concomitant]
  14. PREVACID [Concomitant]
  15. VITAMIN D [Concomitant]
  16. TYLENOL W/ CODEINE NO. 3 [Concomitant]
  17. ATIVAN [Concomitant]
  18. LACTULOSE [Concomitant]
  19. MOTILIUM   JANSSEN-ORTHO    (DOMPERIDONE MALEATE) [Concomitant]
  20. DIDROCAL (ETIDRONATE DISODIU, / CALCIUM CARBONATE CYCLICAL) TABLET [Concomitant]

REACTIONS (15)
  - ANTICONVULSANT DRUG LEVEL BELOW THERAPEUTIC [None]
  - BLOOD ALKALINE PHOSPHATASE INCREASED [None]
  - BLOOD CALCIUM DECREASED [None]
  - BLOOD PHOSPHORUS DECREASED [None]
  - GAMMA-GLUTAMYLTRANSFERASE INCREASED [None]
  - HAEMATOCRIT DECREASED [None]
  - HAEMOGLOBIN DECREASED [None]
  - NEPHROLITHIASIS [None]
  - PANCREATITIS [None]
  - RED BLOOD CELL COUNT DECREASED [None]
  - RED BLOOD CELLS URINE [None]
  - URINE ANALYSIS ABNORMAL [None]
  - VITAMIN D INCREASED [None]
  - WHITE BLOOD CELL COUNT DECREASED [None]
  - WHITE BLOOD CELLS URINE [None]
